FAERS Safety Report 7028612-X (Version None)
Quarter: 2010Q4

REPORT INFORMATION
  Report Type: 
  Country: None (occurrence: None)
  Receive Date: 20101001
  Receipt Date: 20101001
  Transmission Date: 20110411
  Serious: Yes (Hospitalization)
  Sender: FDA-Public Use
  Company Number: None

PATIENT
  Age: 46 Year
  Sex: Female
  Weight: 59 kg

DRUGS (1)
  1. ZONISAMIDE [Suspect]
     Dates: start: 20100811

REACTIONS (7)
  - HEPATIC ISCHAEMIA [None]
  - HEPATITIS [None]
  - HEPATOCELLULAR INJURY [None]
  - HEPATOTOXICITY [None]
  - HYPERCOAGULATION [None]
  - MASS [None]
  - PANCREATITIS [None]
